FAERS Safety Report 5273625-1 (Version None)
Quarter: 2007Q1

REPORT INFORMATION
  Report Type: 
  Country: None (occurrence: None)
  Receive Date: 20070321
  Receipt Date: 20070321
  Transmission Date: 20070707
  Serious: No
  Sender: FDA-Public Use
  Company Number: None

PATIENT
  Age: 48 Year
  Sex: Female
  Weight: 81.6475 kg

DRUGS (1)
  1. CALCIUM CITRATE 1000 MG CVS PHARMACY [Suspect]
     Indication: OSTEOPENIA
     Dosage: 2000 MG DAILY PO
     Route: 048
     Dates: start: 20060501, end: 20061201

REACTIONS (4)
  - ANXIETY [None]
  - MEDICATION ERROR [None]
  - PHARMACEUTICAL PRODUCT COMPLAINT [None]
  - UNDERDOSE [None]
